FAERS Safety Report 21125369 (Version 2)
Quarter: 2022Q3

REPORT INFORMATION
  Report Type: Spontaneous
  Country: US (occurrence: None)
  Receive Date: 20220725
  Receipt Date: 20220901
  Transmission Date: 20221027
  Serious: No
  Sender: FDA-Public Use
  Company Number: 2022A260643

PATIENT
  Sex: Female
  Weight: 76.2 kg

DRUGS (3)
  1. TEZSPIRE [Suspect]
     Active Substance: TEZEPELUMAB-EKKO
     Indication: Asthma
     Dosage: EVERY FOUR WEEKS UNKNOWN DOSE
     Route: 058
     Dates: start: 20220206
  2. FASENRA [Suspect]
     Active Substance: BENRALIZUMAB
     Indication: Product used for unknown indication
     Dosage: EVERY 4 WEEKS AND THEN EVERY 8 WEEKS
     Route: 058
     Dates: start: 201806, end: 202112
  3. FASENRA [Suspect]
     Active Substance: BENRALIZUMAB
     Indication: Product used for unknown indication
     Dosage: EVERY 4 WEEKS AND THEN EVERY 8 WEEKS
     Route: 058
     Dates: start: 201806, end: 202112

REACTIONS (5)
  - Asthma [Not Recovered/Not Resolved]
  - Hypersensitivity [Recovering/Resolving]
  - Dyspnoea [Not Recovered/Not Resolved]
  - Chest discomfort [Not Recovered/Not Resolved]
  - Cough [Not Recovered/Not Resolved]
